FAERS Safety Report 7041150-3 (Version None)
Quarter: 2010Q4

REPORT INFORMATION
  Report Type: 
  Country: None (occurrence: None)
  Receive Date: 20101013
  Receipt Date: 20101006
  Transmission Date: 20110411
  Serious: Yes (Death, Hospitalization)
  Sender: FDA-Public Use
  Company Number: US-SANOFI-AVENTIS-2010SA061134

PATIENT
  Age: 62 Year
  Sex: Male

DRUGS (11)
  1. JEVTANA KIT [Suspect]
     Indication: PROSTATE CANCER METASTATIC
     Route: 041
     Dates: start: 20100722, end: 20100722
  2. JEVTANA KIT [Suspect]
     Route: 041
     Dates: start: 20100809, end: 20100809
  3. JEVTANA KIT [Suspect]
     Route: 041
     Dates: start: 20100830, end: 20100830
  4. JEVTANA KIT [Suspect]
     Route: 041
     Dates: start: 20100922, end: 20100922
  5. HYDROMORPHONE HCL [Concomitant]
     Route: 065
  6. MS CONTIN [Concomitant]
     Route: 065
  7. ZOFRAN [Concomitant]
     Dosage: AS NEEDED
     Route: 065
  8. PREDNISONE [Concomitant]
     Indication: PREMEDICATION
     Route: 048
  9. ANZEMET [Concomitant]
     Indication: PREMEDICATION
     Route: 065
  10. DECADRON [Concomitant]
     Indication: PREMEDICATION
     Route: 065
  11. BENADRYL [Concomitant]
     Indication: PREMEDICATION
     Route: 065

REACTIONS (4)
  - ASTHENIA [None]
  - PANCYTOPENIA [None]
  - PULMONARY EMBOLISM [None]
  - RECTAL HAEMORRHAGE [None]
